FAERS Safety Report 23257496 (Version 1)
Quarter: 2023Q4

REPORT INFORMATION
  Report Type: Spontaneous
  Country: US (occurrence: US)
  Receive Date: 20231204
  Receipt Date: 20231204
  Transmission Date: 20240110
  Serious: Yes (Other)
  Sender: FDA-Public Use
  Company Number: US-drreddys-LIT/USA/23/0187610

PATIENT
  Age: 23 Year
  Sex: Male

DRUGS (7)
  1. METFORMIN [Interacting]
     Active Substance: METFORMIN HYDROCHLORIDE
     Indication: Glucose tolerance impaired
  2. METFORMIN [Interacting]
     Active Substance: METFORMIN HYDROCHLORIDE
     Indication: Obesity
  3. TOPIRAMATE [Interacting]
     Active Substance: TOPIRAMATE
     Indication: Obesity
  4. TOPIRAMATE [Interacting]
     Active Substance: TOPIRAMATE
  5. PHENTERMINE [Interacting]
     Active Substance: PHENTERMINE
     Indication: Obesity
     Dosage: 15MG
  6. PHENTERMINE [Interacting]
     Active Substance: PHENTERMINE
     Dosage: 18.75MG
  7. SEMAGLUTIDE [Interacting]
     Active Substance: SEMAGLUTIDE
     Indication: Obesity

REACTIONS (2)
  - Drug ineffective [Unknown]
  - Drug interaction [Unknown]
